FAERS Safety Report 14274159 (Version 1)
Quarter: 2017Q4

REPORT INFORMATION
  Report Type: Spontaneous
  Country: US (occurrence: US)
  Receive Date: 20171212
  Receipt Date: 20171212
  Transmission Date: 20180321
  Serious: No
  Sender: FDA-Public Use
  Company Number: US-JNJFOC-20171201161

PATIENT
  Age: 40 Year
  Sex: Male
  Weight: 79.38 kg

DRUGS (4)
  1. NIZORAL A-D [Concomitant]
     Active Substance: KETOCONAZOLE
     Indication: SKIN IRRITATION
     Route: 065
  2. NIZORAL A-D [Concomitant]
     Active Substance: KETOCONAZOLE
     Indication: PRURITUS
     Route: 065
  3. MENS ROGAINE EXTRA STRENGTH [Suspect]
     Active Substance: MINOXIDIL
     Route: 061
  4. MENS ROGAINE EXTRA STRENGTH [Suspect]
     Active Substance: MINOXIDIL
     Indication: ALOPECIA
     Route: 061

REACTIONS (3)
  - Skin irritation [Recovered/Resolved]
  - Contraindicated product administered [Unknown]
  - Pruritus [Recovered/Resolved]
